FAERS Safety Report 5891551-1 (Version None)
Quarter: 2008Q3

REPORT INFORMATION
  Report Type: 
  Country: None (occurrence: None)
  Receive Date: 20080918
  Receipt Date: 20080909
  Transmission Date: 20090109
  Serious: Yes (Other)
  Sender: FDA-Public Use
  Company Number: 20181

PATIENT
  Age: 56 Year
  Sex: Female

DRUGS (5)
  1. CARBOPLATIN [Suspect]
     Indication: OVARIAN CANCER RECURRENT
     Dosage: 5 AUC PER_CYCLE OTHER
     Route: 050
  2. PACLITAXEL [Concomitant]
  3. CORTICOSTEROIDS [Concomitant]
  4. ANTIHISTAMINES [Concomitant]
  5. H2 ANTAGONISTS [Concomitant]

REACTIONS (2)
  - CHEST PAIN [None]
  - HYPERSENSITIVITY [None]
